FAERS Safety Report 8055675-5 (Version None)
Quarter: 2012Q1

REPORT INFORMATION
  Report Type: 
  Country: None (occurrence: None)
  Receive Date: 20120119
  Receipt Date: 20120109
  Transmission Date: 20120608
  Serious: Yes (Other)
  Sender: FDA-Public Use
  Company Number: MX-ELI_LILLY_AND_COMPANY-MX201201002822

PATIENT
  Age: 64 Year
  Sex: Female
  Weight: 49 kg

DRUGS (4)
  1. CALCORT [Concomitant]
  2. ANALGESICS [Concomitant]
  3. FORTEO [Suspect]
     Indication: OSTEOPOROSIS
     Dosage: 20 UG, QD
     Route: 058
     Dates: start: 20110201
  4. MELOXICAM [Concomitant]

REACTIONS (3)
  - HIP ARTHROPLASTY [None]
  - INFLUENZA LIKE ILLNESS [None]
  - RHINORRHOEA [None]
